FAERS Safety Report 9814401 (Version 1)
Quarter: 2014Q1

REPORT INFORMATION
  Report Type: Spontaneous
  Country: US (occurrence: US)
  Receive Date: 20140113
  Receipt Date: 20140113
  Transmission Date: 20141002
  Serious: No
  Sender: FDA-Public Use
  Company Number: US-ENDO PHARMACEUTICALS INC.-HCDA20130069

PATIENT
  Age: 75 Year
  Sex: Female
  Weight: 65.83 kg

DRUGS (2)
  1. HYDROCODONE/ACETAMINOPHEN [Suspect]
     Indication: PAIN
     Dosage: UNKNOWN
     Route: 048
  2. HYDROCODONE/ACETAMINOPHEN [Suspect]
     Indication: SPINAL COLUMN STENOSIS

REACTIONS (3)
  - Arrhythmia [Recovered/Resolved]
  - Toothache [Recovered/Resolved]
  - Glossodynia [Recovered/Resolved]
